FAERS Safety Report 12755931 (Version 2)
Quarter: 2016Q4

REPORT INFORMATION
  Report Type: Spontaneous
  Country: DE (occurrence: DE)
  Receive Date: 20160916
  Receipt Date: 20161018
  Transmission Date: 20170207
  Serious: Yes (Other)
  Sender: FDA-Public Use
  Company Number: DE-PFIZER INC-2016432858

PATIENT
  Age: 55 Year
  Sex: Female

DRUGS (2)
  1. METHOTREXATE SODIUM. [Suspect]
     Active Substance: METHOTREXATE SODIUM
  2. ENBREL [Suspect]
     Active Substance: ETANERCEPT

REACTIONS (2)
  - Eye inflammation [Not Recovered/Not Resolved]
  - Iritis [Not Recovered/Not Resolved]
